FAERS Safety Report 8222347-3 (Version None)
Quarter: 2012Q1

REPORT INFORMATION
  Report Type: 
  Country: None (occurrence: None)
  Receive Date: 20120320
  Receipt Date: 20120312
  Transmission Date: 20120608
  Serious: Yes (Other)
  Sender: FDA-Public Use
  Company Number: NL-TEVA-328435ISR

PATIENT
  Sex: Female

DRUGS (1)
  1. LITHIUM CARBONATE [Suspect]

REACTIONS (6)
  - DISTURBANCE IN SOCIAL BEHAVIOUR [None]
  - TOXICITY TO VARIOUS AGENTS [None]
  - RENAL DISORDER [None]
  - THINKING ABNORMAL [None]
  - NEPHROGENIC DIABETES INSIPIDUS [None]
  - THYROID DISORDER [None]
